FAERS Safety Report 9937087 (Version 2)
Quarter: 2015Q4

REPORT INFORMATION
  Report Type: Report from Study
  Country: US (occurrence: US)
  Receive Date: 20140301
  Receipt Date: 20151021
  Transmission Date: 20160305
  Serious: Yes (Hospitalization)
  Sender: FDA-Public Use
  Company Number: US-ROCHE-1356701

PATIENT
  Sex: Female

DRUGS (4)
  1. LUCENTIS [Suspect]
     Active Substance: RANIBIZUMAB
     Indication: VASCULAR RUPTURE
     Dosage: ABOUT EVERY 5 WEEKS LEFT EYE
     Route: 050
     Dates: start: 201103
  2. LUCENTIS [Suspect]
     Active Substance: RANIBIZUMAB
     Indication: NEOVASCULAR AGE-RELATED MACULAR DEGENERATION
     Route: 050
  3. LOSARTAN. [Concomitant]
     Active Substance: LOSARTAN
  4. SIMVASTATIN. [Concomitant]
     Active Substance: SIMVASTATIN

REACTIONS (4)
  - Thrombosis [Unknown]
  - Urinary tract infection [Recovering/Resolving]
  - Pneumonia [Unknown]
  - Abdominal pain [Unknown]
